FAERS Safety Report 16313829 (Version 9)
Quarter: 2021Q2

REPORT INFORMATION
  Report Type: Spontaneous
  Country: US (occurrence: US)
  Receive Date: 20190515
  Receipt Date: 20210402
  Transmission Date: 20210716
  Serious: No
  Sender: FDA-Public Use
  Company Number: US-PFIZER INC-2019205737

PATIENT
  Age: 65 Year
  Sex: Female
  Weight: 62 kg

DRUGS (15)
  1. XELJANZ XR [Suspect]
     Active Substance: TOFACITINIB CITRATE
     Indication: RHEUMATOID ARTHRITIS
     Dosage: 11 MG, 1X/DAY
     Route: 048
  2. XELJANZ XR [Suspect]
     Active Substance: TOFACITINIB CITRATE
     Dosage: 11 MG
  3. SYNTHROID [Concomitant]
     Active Substance: LEVOTHYROXINE SODIUM
     Dosage: UNK [15YRS]
  4. LYRICA [Concomitant]
     Active Substance: PREGABALIN
     Dosage: UNK [10+YRS]
  5. XELJANZ XR [Suspect]
     Active Substance: TOFACITINIB CITRATE
     Indication: FIBROMYALGIA
     Dosage: 11 MG, 1X/DAY
     Route: 048
  6. ADDERALL [Concomitant]
     Active Substance: AMPHETAMINE ASPARTATE\AMPHETAMINE SULFATE\DEXTROAMPHETAMINE SACCHARATE\DEXTROAMPHETAMINE SULFATE
     Dosage: UNK [15+ YRS AGO]
  7. ESTRADIOL. [Concomitant]
     Active Substance: ESTRADIOL
     Dosage: UNK [10+YRS]
  8. LUNESTA [Concomitant]
     Active Substance: ESZOPICLONE
     Dosage: UNK [9MONTHS]
  9. SEROQUEL [Concomitant]
     Active Substance: QUETIAPINE FUMARATE
     Dosage: UNK [10+YRS]
  10. NEXIUM I.V. [Concomitant]
     Active Substance: ESOMEPRAZOLE SODIUM
     Dosage: UNK [6YRS]
  11. XELJANZ XR [Suspect]
     Active Substance: TOFACITINIB CITRATE
     Dosage: 11 MG, 1X/DAY (ONCE A DAY IN THE MORNING)
  12. CYMBALTA [Concomitant]
     Active Substance: DULOXETINE HYDROCHLORIDE
     Dosage: UNK [20+ YRS AGO]
  13. FOLIC ACID. [Concomitant]
     Active Substance: FOLIC ACID
     Dosage: UNK [3YRS]
  14. TOFRANIL [Concomitant]
     Active Substance: IMIPRAMINE HYDROCHLORIDE
     Dosage: UNK
  15. OXYCODON [Concomitant]
     Active Substance: OXYCODONE
     Dosage: UNK [8+YRS]

REACTIONS (8)
  - Arthralgia [Unknown]
  - Sensitivity to weather change [Unknown]
  - Feeling abnormal [Unknown]
  - Malaise [Not Recovered/Not Resolved]
  - Somatic symptom disorder [Unknown]
  - Therapeutic product effect incomplete [Unknown]
  - Depression [Unknown]
  - Pain [Unknown]
